FAERS Safety Report 9730198 (Version 1)
Quarter: 2013Q4

REPORT INFORMATION
  Report Type: Spontaneous
  Country: US (occurrence: US)
  Receive Date: 20131204
  Receipt Date: 20131204
  Transmission Date: 20140711
  Serious: No
  Sender: FDA-Public Use
  Company Number: US-ENDO PHARMACEUTICALS INC.-APIR20130007

PATIENT
  Sex: 0

DRUGS (2)
  1. ALPRAZOLAM IR TABLETS 1MG [Suspect]
     Indication: ANXIETY
     Dosage: TWICE HER NORMAL DOSE
     Route: 048
  2. ALPRAZOLAM IR TABLETS 1MG [Suspect]
     Indication: PANIC ATTACK
     Route: 048

REACTIONS (3)
  - Dysgeusia [Unknown]
  - Intentional drug misuse [Unknown]
  - Drug effect decreased [Unknown]
